FAERS Safety Report 5134518-3 (Version None)
Quarter: 2006Q4

REPORT INFORMATION
  Report Type: 
  Country: None (occurrence: None)
  Receive Date: 20061019
  Receipt Date: 20061004
  Transmission Date: 20070319
  Serious: Yes (Hospitalization, Other)
  Sender: FDA-Public Use
  Company Number: US200610000714

PATIENT
  Age: 64 Year
  Sex: Male

DRUGS (4)
  1. HUMULIN L [Suspect]
     Dosage: 20 U, EACH EVENING,
     Dates: start: 19810101
  2. HUMULIN LENTE REGIMEN #2 [Suspect]
     Dosage: 35 U, EACH EVENING
     Dates: start: 19810101
  3. ACTOS [Concomitant]
  4. ANTIHYPERTENSIVES [Concomitant]

REACTIONS (7)
  - BLINDNESS TRANSIENT [None]
  - BLOOD GLUCOSE DECREASED [None]
  - BLOOD GLUCOSE FLUCTUATION [None]
  - BLOOD GLUCOSE INCREASED [None]
  - CARDIAC OPERATION [None]
  - DIABETIC RETINOPATHY [None]
  - WEIGHT INCREASED [None]
